FAERS Safety Report 9226825 (Version 3)
Quarter: 2013Q4

REPORT INFORMATION
  Report Type: Report from Study
  Country: CA (occurrence: CA)
  Receive Date: 20130412
  Receipt Date: 20131001
  Transmission Date: 20140711
  Serious: Yes (Death, Other)
  Sender: FDA-Public Use
  Company Number: CA-JNJFOC-20130401133

PATIENT
  Age: 77 Year
  Sex: Female
  Weight: 55.34 kg

DRUGS (5)
  1. REMICADE [Suspect]
     Indication: RHEUMATOID ARTHRITIS
     Dosage: 11TH DOSE IN SERIES
     Route: 042
     Dates: start: 20110915, end: 20130129
  2. METHOTREXATE [Concomitant]
     Indication: RHEUMATOID ARTHRITIS
     Route: 048
     Dates: start: 200106
  3. CELEBREX [Concomitant]
     Indication: RHEUMATOID ARTHRITIS
     Route: 048
     Dates: start: 200106
  4. FOLIC ACID [Concomitant]
     Indication: ADJUVANT THERAPY
     Route: 048
     Dates: start: 200106
  5. TECTA [Concomitant]
     Indication: GASTROOESOPHAGEAL REFLUX DISEASE
     Route: 048
     Dates: start: 201301

REACTIONS (2)
  - Metastatic neoplasm [Fatal]
  - Intervertebral disc compression [Not Recovered/Not Resolved]
